FAERS Safety Report 21668795 (Version 1)
Quarter: 2022Q4

REPORT INFORMATION
  Report Type: Spontaneous
  Country: US (occurrence: None)
  Receive Date: 20221130
  Receipt Date: 20221130
  Transmission Date: 20230112
  Serious: Yes (Death)
  Sender: FDA-Public Use
  Company Number: None

PATIENT
  Age: 83 Year
  Sex: Male

DRUGS (11)
  1. NOURIANZ [Suspect]
     Active Substance: ISTRADEFYLLINE
     Indication: Parkinson^s disease
     Dosage: FREQUENCY : DAILY;?
     Route: 048
     Dates: start: 20201119, end: 20221114
  2. ATORVASTATIN [Concomitant]
     Active Substance: ATORVASTATIN
  3. MIRTAZAPINE [Concomitant]
     Active Substance: MIRTAZAPINE
  4. RYTARY ER [Concomitant]
  5. COLACE [Concomitant]
  6. IRBESART AN [Concomitant]
  7. MULTIVITAMIN MEN [Concomitant]
  8. VITAMIN D3 [Concomitant]
  9. AMANTADINE [Concomitant]
  10. ELIQUIS [Concomitant]
  11. SELEGILINE [Concomitant]

REACTIONS (2)
  - Parkinson^s disease [None]
  - Hospice care [None]

NARRATIVE: CASE EVENT DATE: 20221114
